FAERS Safety Report 10971230 (Version 1)
Quarter: 2015Q1

REPORT INFORMATION
  Report Type: Spontaneous
  Country: FR (occurrence: FR)
  Receive Date: 20150331
  Receipt Date: 20150331
  Transmission Date: 20150721
  Serious: Yes (Hospitalization, Other)
  Sender: FDA-Public Use
  Company Number: FR-ROXANE LABORATORIES, INC.-2015-RO-00535RO

PATIENT
  Age: 80 Year
  Sex: Female

DRUGS (3)
  1. BILASTINE [Concomitant]
     Active Substance: BILASTINE
     Route: 065
  2. NAPROXEN. [Suspect]
     Active Substance: NAPROXEN
     Indication: ARTHRALGIA
     Dosage: 750 MG
     Route: 065
  3. AMOXICILLIN/CLAVULANIC ACID [Concomitant]
     Active Substance: AMOXICILLIN\CLAVULANIC ACID
     Route: 065

REACTIONS (3)
  - Pleural effusion [Recovered/Resolved]
  - Renal failure [Unknown]
  - Pulmonary eosinophilia [Recovered/Resolved]
